FAERS Safety Report 6370128-8 (Version None)
Quarter: 2009Q3

REPORT INFORMATION
  Report Type: 
  Country: None (occurrence: None)
  Receive Date: 20090923
  Receipt Date: 20071008
  Transmission Date: 20100115
  Serious: Yes (Other)
  Sender: FDA-Public Use
  Company Number: US-ASTRAZENECA-2006UW21767

PATIENT
  Age: 29 Year
  Sex: Female
  Weight: 123.8 kg

DRUGS (11)
  1. SEROQUEL [Suspect]
     Indication: DEPRESSION
     Route: 048
     Dates: start: 20020101, end: 20060418
  2. SEROQUEL [Suspect]
     Indication: SLEEP DISORDER
     Route: 048
     Dates: start: 20020101, end: 20060418
  3. SEROQUEL [Suspect]
     Dosage: 25 - 100 MG DAILY
     Route: 048
     Dates: start: 20060418
  4. SEROQUEL [Suspect]
     Dosage: 25 - 100 MG DAILY
     Route: 048
     Dates: start: 20060418
  5. ALBUTEROL [Concomitant]
     Dosage: AS REQUIRED
     Route: 045
     Dates: start: 20040901
  6. HYDROCHLOROTHIAZIDE [Concomitant]
     Route: 048
     Dates: start: 20040901
  7. LISINOPRIL [Concomitant]
     Route: 048
     Dates: start: 20040901
  8. LOVASTATIN [Concomitant]
     Route: 048
     Dates: start: 20040901
  9. CONGESTAC [Concomitant]
     Dosage: AS REQUIRED
     Route: 008
     Dates: start: 20040901
  10. NIFEDIPINE [Concomitant]
     Route: 048
     Dates: start: 20040901
  11. CITALOPRAM HYDROBROMIDE [Concomitant]
     Route: 048
     Dates: start: 20060418

REACTIONS (6)
  - BLOOD CHOLESTEROL INCREASED [None]
  - BLOOD TRIGLYCERIDES INCREASED [None]
  - DIABETES MELLITUS [None]
  - DIABETES MELLITUS INADEQUATE CONTROL [None]
  - HYPERLIPIDAEMIA [None]
  - OBESITY [None]
